FAERS Safety Report 4837565-1 (Version None)
Quarter: 2005Q4

REPORT INFORMATION
  Report Type: 
  Country: None (occurrence: None)
  Receive Date: 20051128
  Receipt Date: 20051117
  Transmission Date: 20060501
  Serious: Yes (Hospitalization)
  Sender: FDA-Public Use
  Company Number: GB-BRISTOL-MYERS SQUIBB COMPANY-13184346

PATIENT
  Age: 62 Year
  Sex: Female
  Weight: 46 kg

DRUGS (8)
  1. CISPLATIN [Suspect]
     Indication: METASTATIC GASTRIC CANCER
     Route: 042
     Dates: start: 20050804, end: 20050804
  2. EPIRUBICIN [Suspect]
     Indication: METASTATIC GASTRIC CANCER
     Route: 042
     Dates: start: 20050408, end: 20050408
  3. XELODA [Suspect]
     Indication: METASTATIC GASTRIC CANCER
     Route: 048
     Dates: start: 20050804, end: 20050804
  4. FLUOXETINE [Concomitant]
     Route: 048
  5. DIAZEPAM [Concomitant]
     Route: 048
  6. SYMBICORT [Concomitant]
     Indication: ASTHMA
     Route: 055
  7. FERROUS SULFATE TAB [Concomitant]
     Route: 048
  8. DOMPERIDONE [Concomitant]

REACTIONS (5)
  - ABDOMINAL PAIN [None]
  - DIARRHOEA [None]
  - HERPES SIMPLEX [None]
  - NEUTROPENIA [None]
  - VOMITING [None]
